FAERS Safety Report 5586976-8 (Version None)
Quarter: 2008Q1

REPORT INFORMATION
  Report Type: 
  Country: None (occurrence: None)
  Receive Date: 20080107
  Receipt Date: 20080102
  Transmission Date: 20080703
  Serious: Yes (Hospitalization, Disabling)
  Sender: FDA-Public Use
  Company Number: 17400

PATIENT
  Age: 72 Year
  Sex: Female

DRUGS (17)
  1. CYTARABINE [Suspect]
     Indication: ACUTE MYELOID LEUKAEMIA
     Dosage: 20 MG/M2 QD SC
     Route: 058
     Dates: start: 20070604, end: 20070709
  2. CYTARABINE [Suspect]
     Indication: ACUTE MYELOID LEUKAEMIA
     Dates: start: 20070801, end: 20070805
  3. EPIRUBICIN HYDROCHLORIDE [Suspect]
     Indication: DRUG USE FOR UNKNOWN INDICATION
     Dates: start: 20070801, end: 20070805
  4. AMOXICILLIN [Concomitant]
  5. SODIUM CHLORIDE [Concomitant]
  6. ALLOPURINOL [Concomitant]
  7. ONDANSETRON [Concomitant]
  8. NATRIUM BICARBONATE [Concomitant]
  9. ELECTROLYTE COMOPUND SOLUTION [Concomitant]
  10. FUROSEMIDE [Concomitant]
  11. THIETHYLPERAZINE [Concomitant]
  12. AMOXICILLIN [Concomitant]
  13. KETOCONAZOLE [Concomitant]
  14. KALIUM CHLORIDE [Concomitant]
  15. SULFACETAMIDE [Concomitant]
  16. METAMIZOLE [Concomitant]
  17. CLAVULANATE POTASSIUM [Concomitant]

REACTIONS (14)
  - ALANINE AMINOTRANSFERASE DECREASED [None]
  - BLOOD ALKALINE PHOSPHATASE INCREASED [None]
  - BLOOD GLUCOSE INCREASED [None]
  - BRONCHOPNEUMONIA [None]
  - BUNDLE BRANCH BLOCK RIGHT [None]
  - CATHETER SITE ERYTHEMA [None]
  - CATHETER SITE INFECTION [None]
  - CATHETER SITE PAIN [None]
  - CHEST PAIN [None]
  - DIARRHOEA [None]
  - DISEASE PROGRESSION [None]
  - HYPOTENSION [None]
  - HYPOTONIA [None]
  - NAUSEA [None]
